FAERS Safety Report 7793073-X (Version None)
Quarter: 2011Q3

REPORT INFORMATION
  Report Type: 
  Country: None (occurrence: None)
  Receive Date: 20110930
  Receipt Date: 20110930
  Transmission Date: 20111222
  Serious: Yes (Other)
  Sender: FDA-Public Use
  Company Number: None

PATIENT
  Age: 56 Year
  Sex: Female
  Weight: 49.8957 kg

DRUGS (1)
  1. RECLAST [Suspect]
     Indication: OSTEOPOROSIS
     Dosage: YEARLY

REACTIONS (6)
  - ERYTHEMA [None]
  - NAUSEA [None]
  - FATIGUE [None]
  - PYREXIA [None]
  - LYMPHOEDEMA [None]
  - OEDEMA PERIPHERAL [None]
